FAERS Safety Report 7438801-8 (Version None)
Quarter: 2011Q2

REPORT INFORMATION
  Report Type: 
  Country: None (occurrence: None)
  Receive Date: 20110426
  Receipt Date: 20110412
  Transmission Date: 20111010
  Serious: Yes (Hospitalization, Other)
  Sender: FDA-Public Use
  Company Number: US-CELGENEUS-163-21880-11032146

PATIENT
  Sex: Female

DRUGS (33)
  1. DECADRON [Concomitant]
     Indication: MULTIPLE MYELOMA
     Dosage: 40 MILLIGRAM
     Route: 048
     Dates: start: 20110211, end: 20110228
  2. ACETAMINOPHEN [Concomitant]
     Route: 065
  3. NORCO [Concomitant]
     Route: 065
  4. LISINOPRIL [Concomitant]
     Dosage: 40 MILLIGRAM
     Route: 048
  5. LANTUS [Concomitant]
     Dosage: 4 UNITS
     Route: 058
  6. PAXIL [Concomitant]
     Route: 065
  7. ZOFRAN [Concomitant]
     Route: 065
  8. CALCIUM + VITAMIN D [Concomitant]
     Route: 065
  9. NEURONTIN [Concomitant]
     Dosage: 400 MILLIGRAM
     Route: 048
  10. PROVENTIL [Concomitant]
     Route: 065
  11. GLUCOSE [Concomitant]
     Route: 065
  12. MULTI-VITAMINS [Concomitant]
     Route: 048
  13. PLAVIX [Concomitant]
     Dosage: 75 MILLIGRAM
     Route: 048
  14. HYDROCHLOROTHIAZIDE [Concomitant]
     Dosage: 25 MILLIGRAM
     Route: 048
  15. HEPARIN [Concomitant]
     Route: 065
  16. LEVAQUIN [Concomitant]
     Route: 065
  17. PROTONIX [Concomitant]
     Route: 065
  18. FLUID [Concomitant]
     Route: 051
  19. VITAMIN B-12 [Concomitant]
     Route: 065
  20. COLACE [Concomitant]
     Route: 065
  21. TOPROL-XL [Concomitant]
     Route: 065
  22. CIMETIDINE [Concomitant]
     Dosage: 800 MILLIGRAM
     Route: 048
  23. CRESTOR [Concomitant]
     Dosage: 20 MILLIGRAM/MILLILITERS
     Route: 048
  24. PAROXETINE HCL [Concomitant]
     Dosage: 10 MILLIGRAM
     Route: 048
  25. REVLIMID [Suspect]
     Indication: MULTIPLE MYELOMA
     Dosage: 7.5 MILLIGRAM
     Route: 048
     Dates: start: 20110211, end: 20110228
  26. VELCADE [Suspect]
     Indication: MULTIPLE MYELOMA
     Dosage: 2.7 MILLIGRAM
     Route: 051
     Dates: start: 20110211, end: 20110225
  27. FOLIC ACID [Concomitant]
     Route: 065
  28. NOVOLOG [Concomitant]
     Dosage: 10 UNITS
     Route: 058
  29. MULTIPLE VITAMIN [Concomitant]
     Route: 065
  30. DULCOLAX [Concomitant]
     Route: 065
  31. METOPROLOL [Concomitant]
     Dosage: 25 MILLIGRAM
     Route: 048
  32. NORVASC [Concomitant]
     Dosage: 10 MILLIGRAM
     Route: 048
  33. ASPIRIN [Concomitant]
     Dosage: 325 MILLIGRAM
     Route: 048
     Dates: start: 20110211

REACTIONS (5)
  - SYNCOPE [None]
  - PANCYTOPENIA [None]
  - RENAL FAILURE ACUTE [None]
  - PNEUMONIA [None]
  - NEUROPATHY PERIPHERAL [None]
